FAERS Safety Report 7331732-3 (Version None)
Quarter: 2011Q1

REPORT INFORMATION
  Report Type: 
  Country: None (occurrence: None)
  Receive Date: 20110304
  Receipt Date: 20110304
  Transmission Date: 20110831
  Serious: Yes (Hospitalization)
  Sender: FDA-Public Use
  Company Number: PHHO2009IL01264

PATIENT
  Sex: Male
  Weight: 82 kg

DRUGS (2)
  1. SANDOSTATIN LAR [Suspect]
     Indication: CARCINOID TUMOUR
     Dosage: UNK
     Dates: start: 20070715
  2. PLACEBO [Suspect]
     Indication: CARCINOID TUMOUR
     Dosage: PLACEBO
     Dates: start: 20080414

REACTIONS (4)
  - URETEROSCOPY [None]
  - CALCULUS URETERIC [None]
  - RENAL STONE REMOVAL [None]
  - NEPHROLITHIASIS [None]
